FAERS Safety Report 10147067 (Version 1)
Quarter: 2014Q2

REPORT INFORMATION
  Report Type: Spontaneous
  Country: US (occurrence: US)
  Receive Date: 20140501
  Receipt Date: 20140501
  Transmission Date: 20141212
  Serious: No
  Sender: FDA-Public Use
  Company Number: US-PFIZER INC-2014119627

PATIENT
  Age: 49 Year
  Sex: Male
  Weight: 89.8 kg

DRUGS (5)
  1. CHANTIX [Suspect]
     Indication: SMOKING CESSATION THERAPY
     Dosage: UNK
     Dates: start: 201205
  2. PERCOCET [Concomitant]
     Dosage: 325 MG, EVERY 4 HRS
  3. DEPAKOTE [Concomitant]
     Dosage: 500 MG, 3X/DAY
  4. OXYCONTIN [Concomitant]
     Dosage: 30 MG, 2X/DAY
  5. DILANTIN [Concomitant]
     Dosage: 200 MG, 2X/DAY

REACTIONS (1)
  - Fear [Unknown]
